FAERS Safety Report 7136521-0 (Version None)
Quarter: 2010Q4

REPORT INFORMATION
  Report Type: 
  Country: None (occurrence: None)
  Receive Date: 20101206
  Receipt Date: 20080530
  Transmission Date: 20110411
  Serious: Yes (Death)
  Sender: FDA-Public Use
  Company Number: AU-ACTELION-A-CH2008-19830

PATIENT
  Sex: Male

DRUGS (1)
  1. TRACLEER [Suspect]
     Route: 048

REACTIONS (2)
  - DEATH [None]
  - MALAISE [None]
